FAERS Safety Report 7947052-X (Version None)
Quarter: 2011Q4

REPORT INFORMATION
  Report Type: 
  Country: None (occurrence: None)
  Receive Date: 20111129
  Receipt Date: 20110906
  Transmission Date: 20120403
  Serious: Yes (Other)
  Sender: FDA-Public Use
  Company Number: US-ASTRAZENECA-2011SE50942

PATIENT
  Age: 75 Year
  Sex: Female

DRUGS (2)
  1. MULTIPLE MEDICATIONS [Concomitant]
  2. VIMOVO [Suspect]
     Dosage: 500MG/20MG
     Route: 048

REACTIONS (1)
  - GASTROINTESTINAL HAEMORRHAGE [None]
